FAERS Safety Report 9634335 (Version 1)
Quarter: 2013Q4

REPORT INFORMATION
  Report Type: Spontaneous
  Country: US (occurrence: US)
  Receive Date: 20131021
  Receipt Date: 20131021
  Transmission Date: 20140711
  Serious: Yes (Hospitalization)
  Sender: FDA-Public Use
  Company Number: US-JNJFOC-20131008011

PATIENT
  Age: 74 Year
  Sex: Male
  Weight: 117.94 kg

DRUGS (5)
  1. XARELTO [Suspect]
     Indication: THROMBOSIS
     Route: 048
     Dates: start: 20131007, end: 20131008
  2. METOPROLOL [Concomitant]
     Indication: FAMILIAL TREMOR
     Route: 048
  3. PROZAC [Concomitant]
     Indication: DEPRESSION
     Route: 048
  4. PRILOSEC [Concomitant]
     Indication: GASTROOESOPHAGEAL REFLUX DISEASE
     Route: 048
  5. SIMVASTATIN [Concomitant]
     Indication: BLOOD CHOLESTEROL
     Route: 048

REACTIONS (7)
  - Renal pain [Unknown]
  - Thrombosis [Unknown]
  - Speech disorder [Recovered/Resolved]
  - Pharyngeal oedema [Unknown]
  - Swelling [Unknown]
  - Swelling face [Unknown]
  - Dyspnoea [Unknown]
